FAERS Safety Report 23915707 (Version 1)
Quarter: 2024Q2

REPORT INFORMATION
  Report Type: Spontaneous
  Country: US (occurrence: None)
  Receive Date: 20240528
  Receipt Date: 20240528
  Transmission Date: 20240717
  Serious: Yes (Other)
  Sender: FDA-Public Use
  Company Number: None

PATIENT
  Age: 67 Year
  Sex: Female
  Weight: 53.55 kg

DRUGS (1)
  1. ZOLEDRONIC ACID [Suspect]
     Active Substance: ZOLEDRONIC ACID
     Indication: Osteoporosis
     Dosage: OTHER FREQUENCY : ONCE;?
     Route: 041
     Dates: start: 20240314, end: 20240314

REACTIONS (26)
  - Dizziness [None]
  - Infusion related reaction [None]
  - Nausea [None]
  - Arthralgia [None]
  - Paraesthesia [None]
  - Sleep disorder [None]
  - Arthralgia [None]
  - Arthralgia [None]
  - Arthralgia [None]
  - Joint swelling [None]
  - Erythema [None]
  - Skin odour abnormal [None]
  - Night sweats [None]
  - Hot flush [None]
  - Reading disorder [None]
  - Disturbance in attention [None]
  - Fatigue [None]
  - Oedema peripheral [None]
  - Pain in extremity [None]
  - Dysstasia [None]
  - Decreased appetite [None]
  - Taste disorder [None]
  - Dysgeusia [None]
  - Blood pressure systolic increased [None]
  - Constipation [None]
  - Oral mucosal exfoliation [None]

NARRATIVE: CASE EVENT DATE: 20240314
